FAERS Safety Report 6442118-8 (Version None)
Quarter: 2009Q4

REPORT INFORMATION
  Report Type: 
  Country: None (occurrence: None)
  Receive Date: 20091116
  Receipt Date: 20091104
  Transmission Date: 20100525
  Serious: Yes (Other)
  Sender: FDA-Public Use
  Company Number: PHHY2009BR48473

PATIENT
  Sex: Female

DRUGS (2)
  1. FORADIL [Suspect]
     Dosage: 12 MCG
     Dates: start: 20091016
  2. DIGOXIN [Concomitant]
     Dosage: 20 MG

REACTIONS (4)
  - CARDIOMEGALY [None]
  - COUGH [None]
  - FATIGUE [None]
  - MASTECTOMY [None]
